FAERS Safety Report 6383716-X (Version None)
Quarter: 2009Q4

REPORT INFORMATION
  Report Type: 
  Country: None (occurrence: None)
  Receive Date: 20091001
  Receipt Date: 20090925
  Transmission Date: 20100525
  Serious: Yes (Other)
  Sender: FDA-Public Use
  Company Number: US-JNJFOC-20090908356

PATIENT
  Sex: Male
  Weight: 118.84 kg

DRUGS (4)
  1. DURAGESIC-100 [Suspect]
     Indication: ARTHRALGIA
     Route: 062
     Dates: start: 20080901, end: 20090901
  2. OMEPRAZOLE [Concomitant]
     Indication: HYPERCHLORHYDRIA
     Route: 048
  3. GEMFIBROZIL [Concomitant]
     Indication: BLOOD CHOLESTEROL INCREASED
     Route: 048
     Dates: start: 20060101
  4. CYMBALTA [Concomitant]
     Indication: DEPRESSION
     Route: 048
     Dates: start: 20060301

REACTIONS (4)
  - ANXIETY [None]
  - DIABETES MELLITUS [None]
  - HAEMORRHAGE [None]
  - INTERVERTEBRAL DISC PROTRUSION [None]
